FAERS Safety Report 10769858 (Version 3)
Quarter: 2015Q1

REPORT INFORMATION
  Report Type: Report from Study
  Country: TW (occurrence: TW)
  Receive Date: 20150206
  Receipt Date: 20150319
  Transmission Date: 20150721
  Serious: Yes (Hospitalization)
  Sender: FDA-Public Use
  Company Number: TW-BRISTOL-MYERS SQUIBB COMPANY-BMS-2015-006304

PATIENT
  Age: 74 Year
  Sex: Female
  Weight: 68 kg

DRUGS (12)
  1. CETUXIMAB [Suspect]
     Active Substance: CETUXIMAB
     Indication: COLORECTAL CANCER METASTATIC
     Dosage: 700 MG, UNK
     Route: 042
     Dates: start: 20141201
  2. CEFAZOLIN [Concomitant]
     Active Substance: CEFAZOLIN
     Indication: BACTERIAL INFECTION
     Dosage: 1000 MG, UNK
     Route: 042
     Dates: start: 20150123
  3. CEPHALEXIN                         /00145501/ [Concomitant]
     Active Substance: CEPHALEXIN
     Indication: BACTERIAL INFECTION
     Dosage: 500 MG, Q12H
     Route: 048
     Dates: start: 20150123, end: 20150124
  4. 5-FU                               /00098801/ [Concomitant]
     Active Substance: FLUOROURACIL
     Indication: COLORECTAL CANCER METASTATIC
     Dosage: UNK
     Route: 065
     Dates: start: 20150112, end: 20150115
  5. FOLINIC ACID [Concomitant]
     Active Substance: LEUCOVORIN
     Indication: COLORECTAL CANCER METASTATIC
     Dosage: UNK
     Route: 065
     Dates: start: 20150112, end: 20150115
  6. IRINOTECAN [Concomitant]
     Active Substance: IRINOTECAN
     Indication: COLORECTAL CANCER METASTATIC
     Dosage: UNK
     Route: 065
     Dates: start: 20150112, end: 20150115
  7. UREA. [Concomitant]
     Active Substance: UREA
     Indication: HYPERKERATOSIS
     Dosage: UNK
     Route: 065
     Dates: start: 20150110
  8. LOPERAMIDE [Concomitant]
     Active Substance: LOPERAMIDE
     Indication: DIARRHOEA
     Dosage: 2 MG, QD
     Route: 048
     Dates: start: 20141227, end: 20150124
  9. HYOSCINE BUTYLBROMIDE [Concomitant]
     Active Substance: BUTYLSCOPOLAMINE
     Indication: ABDOMINAL DISTENSION
     Dosage: 20 MG, UNK
     Route: 042
     Dates: start: 20150123, end: 20150124
  10. DIMETHICONE. [Concomitant]
     Active Substance: DIMETHICONE
     Indication: ABDOMINAL DISTENSION
     Dosage: 40 MG, QID
     Route: 065
     Dates: start: 20150123, end: 20150124
  11. ENTECAVIR. [Suspect]
     Active Substance: ENTECAVIR
     Indication: VIRAL INFECTION
     Dosage: 0.5 MG, QD
     Route: 048
     Dates: start: 20150109, end: 20150124
  12. KAOLIN [Concomitant]
     Active Substance: KAOLIN
     Indication: DIARRHOEA
     Dosage: 15 UNK, UNK
     Route: 048
     Dates: start: 20150123, end: 20150124

REACTIONS (2)
  - Diarrhoea [Recovered/Resolved]
  - Ileus paralytic [Recovered/Resolved]

NARRATIVE: CASE EVENT DATE: 20150120
